FAERS Safety Report 7450400-0 (Version None)
Quarter: 2011Q1

REPORT INFORMATION
  Report Type: 
  Country: None (occurrence: None)
  Receive Date: 20110302
  Receipt Date: 20101110
  Transmission Date: 20110831
  Serious: Yes (Other)
  Sender: FDA-Public Use
  Company Number: 021551

PATIENT
  Sex: Male

DRUGS (1)
  1. CIMZIA [Suspect]
     Indication: CROHN'S DISEASE
     Dosage: (400 MG 1X/MONTH SUBCUTANEOUS)
     Route: 058
     Dates: start: 20090510

REACTIONS (7)
  - PAIN [None]
  - MALAISE [None]
  - FEELING ABNORMAL [None]
  - ABDOMINAL PAIN [None]
  - IMPAIRED WORK ABILITY [None]
  - INJECTION SITE PAIN [None]
  - BOWEL MOVEMENT IRREGULARITY [None]
